FAERS Safety Report 7423558-7 (Version None)
Quarter: 2011Q2

REPORT INFORMATION
  Report Type: 
  Country: None (occurrence: None)
  Receive Date: 20110419
  Receipt Date: 20110418
  Transmission Date: 20111010
  Serious: Yes (Death)
  Sender: FDA-Public Use
  Company Number: AT-MILLENNIUM PHARMACEUTICALS, INC.-2011-01601

PATIENT

DRUGS (7)
  1. RIBOMUSTIN [Suspect]
     Indication: MULTIPLE MYELOMA
     Dosage: 70 MG/M2, UNK
     Route: 042
     Dates: start: 20100803
  2. VELCADE [Suspect]
     Indication: MULTIPLE MYELOMA
     Dosage: 1.3 MG/M2, UNK
     Route: 042
     Dates: start: 20100803
  3. DEXAMETHASONE [Suspect]
     Indication: MULTIPLE MYELOMA
     Dosage: 20 MG, UNK
     Route: 048
  4. RIBOMUSTIN [Suspect]
     Dosage: 42 MG/M2, UNK
     Route: 042
     Dates: end: 20110217
  5. VELCADE [Suspect]
     Dosage: 1.0 MG/M2, UNK
     Route: 042
  6. VELCADE [Suspect]
     Dosage: 0.7 MG/M2, UNK
     Route: 042
     Dates: end: 20110224
  7. RIBOMUSTIN [Suspect]
     Dosage: 56 MG/M2, UNK
     Route: 042

REACTIONS (1)
  - INFECTION [None]
